FAERS Safety Report 5090436-0 (Version None)
Quarter: 2006Q3

REPORT INFORMATION
  Report Type: 
  Country: None (occurrence: None)
  Receive Date: 20060828
  Receipt Date: 20060501
  Transmission Date: 20061208
  Serious: No
  Sender: FDA-Public Use
  Company Number: US-GLAXOSMITHKLINE-A0604296A

PATIENT
  Age: 49 Year
  Sex: Female
  Weight: 54.1 kg

DRUGS (2)
  1. WELLBUTRIN XL [Suspect]
     Dosage: 150MG UNKNOWN
     Route: 048
     Dates: start: 20060401, end: 20060419
  2. BEANO [Suspect]
     Indication: DRUG USE FOR UNKNOWN INDICATION
     Route: 065
     Dates: start: 20060401

REACTIONS (4)
  - ALLODYNIA [None]
  - GASTROOESOPHAGEAL REFLUX DISEASE [None]
  - MUSCLE SPASMS [None]
  - OESOPHAGEAL PAIN [None]
